FAERS Safety Report 13889488 (Version 1)
Quarter: 2017Q3

REPORT INFORMATION
  Report Type: Spontaneous
  Country: CN (occurrence: CN)
  Receive Date: 20170822
  Receipt Date: 20170822
  Transmission Date: 20171127
  Serious: Yes (Hospitalization)
  Sender: FDA-Public Use
  Company Number: CN-ASTRAZENECA-2017SE84092

PATIENT
  Age: 22629 Day
  Sex: Female
  Weight: 47 kg

DRUGS (3)
  1. GEFITINIB. [Suspect]
     Active Substance: GEFITINIB
     Indication: LUNG CARCINOMA CELL TYPE UNSPECIFIED RECURRENT
     Route: 048
     Dates: start: 20170219, end: 20170415
  2. GEFITINIB. [Suspect]
     Active Substance: GEFITINIB
     Indication: LUNG CARCINOMA CELL TYPE UNSPECIFIED RECURRENT
     Route: 048
     Dates: end: 20170424
  3. GEFITINIB. [Suspect]
     Active Substance: GEFITINIB
     Indication: LUNG CARCINOMA CELL TYPE UNSPECIFIED RECURRENT
     Dosage: REDUCED DOSE BY HALF
     Route: 048
     Dates: start: 20170416

REACTIONS (3)
  - Micturition urgency [Not Recovered/Not Resolved]
  - Pollakiuria [Not Recovered/Not Resolved]
  - Dysuria [Not Recovered/Not Resolved]

NARRATIVE: CASE EVENT DATE: 20170326
